FAERS Safety Report 10479062 (Version 2)
Quarter: 2014Q4

REPORT INFORMATION
  Report Type: Spontaneous
  Country: CN (occurrence: CN)
  Receive Date: 20140926
  Receipt Date: 20141105
  Transmission Date: 20150528
  Serious: Yes (Death)
  Sender: FDA-Public Use
  Company Number: CN-GE HEALTHCARE MEDICAL DIAGNOSTICS-VISP-PR-1409S-0423

PATIENT
  Age: 14 Year
  Sex: Male
  Weight: 55 kg

DRUGS (2)
  1. VISIPAQUE [Suspect]
     Active Substance: IODIXANOL
     Indication: DIAGNOSTIC PROCEDURE
  2. VISIPAQUE [Suspect]
     Active Substance: IODIXANOL
     Indication: PRODUCT USED FOR UNKNOWN INDICATION
     Route: 042
     Dates: start: 20140914, end: 20140914

REACTIONS (5)
  - Pulse absent [Fatal]
  - Pallor [Fatal]
  - Seizure [Fatal]
  - Hypopnoea [Fatal]
  - Dysphoria [Fatal]

NARRATIVE: CASE EVENT DATE: 20140914
